FAERS Safety Report 4748756-2 (Version None)
Quarter: 2005Q3

REPORT INFORMATION
  Report Type: 
  Country: None (occurrence: None)
  Receive Date: 20050818
  Receipt Date: 20050808
  Transmission Date: 20060218
  Serious: Yes (Hospitalization)
  Sender: FDA-Public Use
  Company Number: 002#2#2005-00258

PATIENT
  Age: 22 Month
  Sex: Female
  Weight: 11.3399 kg

DRUGS (3)
  1. GLYCOLAX [Suspect]
     Indication: CONSTIPATION
     Dosage: 8.5G, 1 IN 1 D, ORAL; 8.5G, 1 IN 1 D, ORAL
     Route: 048
     Dates: start: 20050402, end: 20050801
  2. GLYCOLAX [Suspect]
     Indication: CONSTIPATION
     Dosage: 8.5G, 1 IN 1 D, ORAL; 8.5G, 1 IN 1 D, ORAL
     Route: 048
     Dates: start: 20050402, end: 20050801
  3. IBUPROFEN [Concomitant]

REACTIONS (15)
  - BLOOD POTASSIUM INCREASED [None]
  - BLOOD SODIUM DECREASED [None]
  - DECREASED APPETITE [None]
  - DEHYDRATION [None]
  - DIARRHOEA [None]
  - ELECTROLYTE IMBALANCE [None]
  - EYE SWELLING [None]
  - FAECALOMA [None]
  - FLUSHING [None]
  - GASTROENTERITIS VIRAL [None]
  - GENERALISED OEDEMA [None]
  - MALAISE [None]
  - PROTEIN TOTAL ABNORMAL [None]
  - RENAL DISORDER [None]
  - VOMITING [None]
